FAERS Safety Report 14077382 (Version 1)
Quarter: 2017Q4

REPORT INFORMATION
  Report Type: Spontaneous
  Country: US (occurrence: US)
  Receive Date: 20171012
  Receipt Date: 20171012
  Transmission Date: 20180321
  Serious: No
  Sender: FDA-Public Use
  Company Number: US-TEVA-780883ACC

PATIENT
  Age: 11 Year
  Sex: Male
  Weight: 36 kg

DRUGS (1)
  1. CHILDRENS IBUPROFEN [Suspect]
     Active Substance: IBUPROFEN
     Indication: HEADACHE
     Dosage: 100 MG/5 ML
     Route: 048
     Dates: start: 20170620

REACTIONS (2)
  - Product physical consistency issue [Unknown]
  - Vomiting [Unknown]

NARRATIVE: CASE EVENT DATE: 20170620
